FAERS Safety Report 24190520 (Version 1)
Quarter: 2024Q3

REPORT INFORMATION
  Report Type: Spontaneous
  Country: CN (occurrence: CN)
  Receive Date: 20240808
  Receipt Date: 20240808
  Transmission Date: 20241017
  Serious: Yes (Hospitalization)
  Sender: BAXTER
  Company Number: None

PATIENT
  Age: 7 Year
  Sex: Male
  Weight: 26 kg

DRUGS (12)
  1. CYCLOPHOSPHAMIDE [Suspect]
     Active Substance: CYCLOPHOSPHAMIDE
     Indication: Rhabdomyoma
     Dosage: 1.13 G, ONE TIME IN ONE DAY, DILUTED WITH 250 ML OF 0.9% SODIUM CHLORIDE, ROUTE: INTRAVENOUS MICROPU
     Route: 050
     Dates: start: 20240706, end: 20240706
  2. CYCLOPHOSPHAMIDE [Suspect]
     Active Substance: CYCLOPHOSPHAMIDE
     Indication: Rhabdomyosarcoma
  3. CYCLOPHOSPHAMIDE [Suspect]
     Active Substance: CYCLOPHOSPHAMIDE
     Indication: Chemotherapy
  4. SODIUM CHLORIDE [Suspect]
     Active Substance: SODIUM CHLORIDE
     Indication: Medication dilution
     Dosage: (0.9%) 250 ML, ONE TIME IN ONE DAY, DOSAGE FORM: INJECTION, USED TO DILUTE 1.13 G CYCLOPHOSPHAMIDE,
     Route: 050
     Dates: start: 20240706, end: 20240706
  5. SODIUM CHLORIDE [Suspect]
     Active Substance: SODIUM CHLORIDE
     Dosage: (0.9%) 50 ML, ONE TIME IN ONE DAY, DOSAGE FORM: INJECTION, USED TO DILUTE 1.15 MG DACTINOMYCIN
     Route: 041
     Dates: start: 20240706, end: 20240706
  6. SODIUM CHLORIDE [Suspect]
     Active Substance: SODIUM CHLORIDE
     Dosage: (0.9%) 20 ML, ONE TIME IN ONE DAY, DOSAGE FORM: INJECTION, USED TO DILUTE 1.4 G VINCRISTINE SULFATE,
     Route: 050
     Dates: start: 20240706, end: 20240706
  7. DACTINOMYCIN [Suspect]
     Active Substance: DACTINOMYCIN
     Indication: Rhabdomyoma
     Dosage: 1.15 MG, ONE TIME IN ONE DAY, DILUTED WITH 50 ML OF 0.9% SODIUM CHLORIDE
     Route: 041
     Dates: start: 20240706, end: 20240706
  8. DACTINOMYCIN [Suspect]
     Active Substance: DACTINOMYCIN
     Indication: Rhabdomyosarcoma
  9. DACTINOMYCIN [Suspect]
     Active Substance: DACTINOMYCIN
     Indication: Chemotherapy
  10. VINCRISTINE SULFATE [Suspect]
     Active Substance: VINCRISTINE SULFATE
     Indication: Rhabdomyoma
     Dosage: 1.4 G, ONE TIME IN ONE DAY, DILUTED WITH 20 ML OF 0.9% SODIUM CHLORIDE, ROUTE: INTRAVENOUS PUSH
     Route: 050
     Dates: start: 20240706, end: 20240706
  11. VINCRISTINE SULFATE [Suspect]
     Active Substance: VINCRISTINE SULFATE
     Indication: Rhabdomyosarcoma
  12. VINCRISTINE SULFATE [Suspect]
     Active Substance: VINCRISTINE SULFATE
     Indication: Chemotherapy

REACTIONS (8)
  - Gastrointestinal pain [Recovering/Resolving]
  - Abdominal pain [Recovered/Resolved]
  - Vomiting [Recovering/Resolving]
  - Urticaria [Recovering/Resolving]
  - Rash [Recovering/Resolving]
  - Rash erythematous [Recovering/Resolving]
  - Rash papular [Recovering/Resolving]
  - Rash pruritic [Recovering/Resolving]

NARRATIVE: CASE EVENT DATE: 20240707
